FAERS Safety Report 16325042 (Version 2)
Quarter: 2019Q3

REPORT INFORMATION
  Report Type: Spontaneous
  Country: SK (occurrence: SK)
  Receive Date: 20190517
  Receipt Date: 20190703
  Transmission Date: 20191004
  Serious: Yes (Other)
  Sender: FDA-Public Use
  Company Number: SK-009507513-1905SVK006691

PATIENT
  Age: 50 Year
  Sex: Male
  Weight: 123 kg

DRUGS (3)
  1. ASMANEX [Suspect]
     Active Substance: MOMETASONE FUROATE
     Indication: ASTHMA
     Dosage: UNK
     Route: 055
     Dates: start: 20190315, end: 201906
  2. FIXIT (FEXOFENADINE HYDROCHLORIDE) [Concomitant]
     Indication: ADVERSE EVENT
     Dosage: UNK
     Route: 048
     Dates: start: 201903
  3. VENTOLIN [Concomitant]
     Active Substance: ALBUTEROL SULFATE
     Indication: ADVERSE EVENT
     Dosage: INHALED
     Route: 055

REACTIONS (4)
  - Optic neuropathy [Recovering/Resolving]
  - Melanocytic naevus [Recovering/Resolving]
  - Optic neuritis [Recovering/Resolving]
  - Maculopathy [Recovering/Resolving]

NARRATIVE: CASE EVENT DATE: 20190514
